FAERS Safety Report 5262535-1 (Version None)
Quarter: 2007Q1

REPORT INFORMATION
  Report Type: 
  Country: None (occurrence: None)
  Receive Date: 20070312
  Receipt Date: 20070306
  Transmission Date: 20070707
  Serious: Yes (Death)
  Sender: FDA-Public Use
  Company Number: JP-BRISTOL-MYERS SQUIBB COMPANY-13634522

PATIENT
  Age: 66 Year
  Sex: Female

DRUGS (3)
  1. TAXOL [Suspect]
     Indication: UTERINE CANCER
     Route: 041
     Dates: start: 20061206, end: 20061206
  2. PARAPLATIN [Suspect]
     Indication: UTERINE CANCER
     Route: 041
     Dates: start: 20061206, end: 20061206
  3. ADRIAMYCIN PFS [Concomitant]
     Indication: UTERINE CANCER
     Route: 041
     Dates: start: 20061205, end: 20061205

REACTIONS (1)
  - DUODENAL PERFORATION [None]
